FAERS Safety Report 7363031-8 (Version None)
Quarter: 2011Q1

REPORT INFORMATION
  Report Type: 
  Country: None (occurrence: None)
  Receive Date: 20110321
  Receipt Date: 20110311
  Transmission Date: 20110831
  Serious: Yes (Other)
  Sender: FDA-Public Use
  Company Number: US-PFIZER INC-2007003714

PATIENT
  Sex: Female

DRUGS (10)
  1. AMITRIPTYLINE [Concomitant]
     Dosage: 50 MG, UNK
     Dates: start: 19950101
  2. NAPROSYN [Concomitant]
     Dosage: UNK
  3. NEURONTIN [Suspect]
     Dosage: 300 MG, 400 MG, 600 MG, 1200 MG
     Dates: start: 19980824, end: 20040928
  4. NEXIUM [Concomitant]
     Dosage: 40 MG, UNK
     Dates: start: 20020101
  5. NEURONTIN [Suspect]
     Dosage: UNK, 3X/DAY
  6. ZITHROMAX [Concomitant]
     Dosage: 1 MG, UNK
     Dates: start: 20020101
  7. NEURONTIN [Suspect]
     Dosage: 300 MG, UNK
     Dates: start: 19970515
  8. NEURONTIN [Suspect]
     Indication: BACK PAIN
     Dosage: 300 MG, UNK
     Dates: start: 19970314
  9. BACTRIM [Concomitant]
     Dosage: UNK
     Dates: start: 20020101
  10. MOTRIN [Concomitant]
     Dosage: 600 MG, UNK
     Dates: start: 19950101

REACTIONS (9)
  - DEPRESSION [None]
  - FATIGUE [None]
  - PAIN [None]
  - ANXIETY [None]
  - ATROPHY [None]
  - HYPOAESTHESIA [None]
  - SUICIDE ATTEMPT [None]
  - BALANCE DISORDER [None]
  - DIZZINESS [None]
